FAERS Safety Report 5925193-6 (Version None)
Quarter: 2008Q4

REPORT INFORMATION
  Report Type: 
  Country: None (occurrence: None)
  Receive Date: 20081020
  Receipt Date: 20081020
  Transmission Date: 20090506
  Serious: Yes (Other)
  Sender: FDA-Public Use
  Company Number: None

PATIENT
  Age: 44 Year
  Sex: Female
  Weight: 58.9676 kg

DRUGS (1)
  1. PROVIGIL [Suspect]
     Indication: NARCOLEPSY
     Dosage: 200 MG TWICE A DAY PO
     Route: 048
     Dates: start: 20080923, end: 20081013

REACTIONS (3)
  - NEGATIVISM [None]
  - PERSONALITY CHANGE [None]
  - SUICIDAL IDEATION [None]
